FAERS Safety Report 14201539 (Version 1)
Quarter: 2017Q4

REPORT INFORMATION
  Report Type: Spontaneous
  Country: US (occurrence: US)
  Receive Date: 20171117
  Receipt Date: 20171117
  Transmission Date: 20180321
  Serious: No
  Sender: FDA-Public Use
  Company Number: US-PERRIGO-17US025549

PATIENT
  Age: 74 Year
  Sex: Female
  Weight: 108.84 kg

DRUGS (3)
  1. POLYETHYLENE GLYCOL 3350. [Suspect]
     Active Substance: POLYETHYLENE GLYCOL 3350
     Indication: CONSTIPATION
     Dosage: 68 G, SINGLE
     Route: 048
     Dates: start: 20170728, end: 20170728
  2. WELLBUTRIN [Concomitant]
     Active Substance: BUPROPION HYDROCHLORIDE
     Indication: CHANGE IN SUSTAINED ATTENTION
     Dosage: UNK
     Route: 065
     Dates: start: 201706
  3. PROGESTERONE. [Concomitant]
     Active Substance: PROGESTERONE
     Indication: ENDOMETRIAL CANCER STAGE I
     Dosage: UNK
     Route: 065
     Dates: start: 201703

REACTIONS (2)
  - Diarrhoea [Recovering/Resolving]
  - Accidental overdose [Recovered/Resolved]

NARRATIVE: CASE EVENT DATE: 20170728
